FAERS Safety Report 25847238 (Version 1)
Quarter: 2025Q3

REPORT INFORMATION
  Report Type: Spontaneous
  Country: US (occurrence: US)
  Receive Date: 20250925
  Receipt Date: 20250925
  Transmission Date: 20251020
  Serious: Yes (Life-Threatening, Hospitalization, Other)
  Sender: SANDOZ
  Company Number: US-SANDOZ-SDZ2025US069795

PATIENT
  Age: 52 Year
  Sex: Male

DRUGS (1)
  1. ISOPROPANOLAMINE [Suspect]
     Active Substance: ISOPROPANOLAMINE
     Indication: Arthralgia
     Route: 061

REACTIONS (2)
  - Depressed level of consciousness [Recovering/Resolving]
  - Toxicity to various agents [Unknown]
